FAERS Safety Report 23964783 (Version 1)
Quarter: 2024Q2

REPORT INFORMATION
  Report Type: Spontaneous
  Country: FR (occurrence: FR)
  Receive Date: 20240612
  Receipt Date: 20240612
  Transmission Date: 20240716
  Serious: Yes (Hospitalization, Other)
  Sender: FDA-Public Use
  Company Number: None

PATIENT

DRUGS (1)
  1. LAMICTAL [Suspect]
     Active Substance: LAMOTRIGINE
     Indication: Epilepsy
     Dosage: UNK
     Route: 065
     Dates: start: 20230925, end: 20230925

REACTIONS (4)
  - Vomiting [Recovered/Resolved]
  - Petit mal epilepsy [Recovered/Resolved]
  - Asthenia [Recovered/Resolved]
  - Product confusion [Recovered/Resolved]

NARRATIVE: CASE EVENT DATE: 20230925
